FAERS Safety Report 5729625-8 (Version None)
Quarter: 2008Q2

REPORT INFORMATION
  Report Type: 
  Country: None (occurrence: None)
  Receive Date: 20080501
  Receipt Date: 20080421
  Transmission Date: 20081010
  Serious: Yes (Hospitalization)
  Sender: FDA-Public Use
  Company Number: 163-21880-08041495

PATIENT
  Sex: Female

DRUGS (2)
  1. REVLIMID [Suspect]
     Indication: MULTIPLE MYELOMA
     Dosage: 25 MG, ORAL; 20 MG, ORAL; 15 MG, ORAL
     Route: 048
     Dates: end: 20080419
  2. DEXAMETHASONE TAB [Concomitant]

REACTIONS (3)
  - CAPILLARY LEAK SYNDROME [None]
  - PLATELET COUNT DECREASED [None]
  - PULMONARY OEDEMA [None]
